FAERS Safety Report 6469620-7 (Version None)
Quarter: 2009Q4

REPORT INFORMATION
  Report Type: 
  Country: None (occurrence: None)
  Receive Date: 20091203
  Receipt Date: 20071213
  Transmission Date: 20100525
  Serious: Yes (Other)
  Sender: FDA-Public Use
  Company Number: US-ELI_LILLY_AND_COMPANY-US200711002645

PATIENT
  Sex: Male
  Weight: 103.86 kg

DRUGS (7)
  1. BYETTA [Suspect]
     Indication: TYPE 2 DIABETES MELLITUS
     Dosage: 5 UG, 2/D
     Route: 058
     Dates: start: 20070312, end: 20070411
  2. BYETTA [Suspect]
     Dosage: 10 UG, 2/D
     Route: 058
     Dates: start: 20070412, end: 20070508
  3. HUMALOG MIX /SPA/ [Concomitant]
     Dosage: 10 U, EACH MORNING
     Dates: start: 19990101
  4. HUMALOG MIX /SPA/ [Concomitant]
     Dosage: 15 U, OTHER
     Dates: start: 19990101
  5. AMARYL [Concomitant]
     Dosage: 4 MG, DAILY (1/D)
  6. ACTOS [Concomitant]
     Dosage: 45 MG, DAILY (1/D)
  7. AVALIDE [Concomitant]
     Dosage: 1 D/F, DAILY (1/D)

REACTIONS (3)
  - BLOOD GLUCOSE INCREASED [None]
  - HODGKIN'S DISEASE [None]
  - MASS [None]
